FAERS Safety Report 4492005-X (Version None)
Quarter: 2004Q4

REPORT INFORMATION
  Report Type: 
  Country: None (occurrence: None)
  Receive Date: 20041101
  Receipt Date: 20041012
  Transmission Date: 20050328
  Serious: No
  Sender: FDA-Public Use
  Company Number: A02200403066

PATIENT
  Sex: Male

DRUGS (5)
  1. ELOXATIN [Suspect]
     Indication: COLORECTAL CANCER
     Route: 042
  2. CAMPTO (IRINOTECAN HYDROCHLORIDE) SOLUTION [Suspect]
     Indication: COLORECTAL CANCER
     Route: 042
  3. FLUOROURACIL [Concomitant]
  4. TOMUDEX (RALTITREXED) [Concomitant]
  5. ERBITUX (CETUXIMAB) [Concomitant]

REACTIONS (3)
  - PORTAL HYPERTENSION [None]
  - VARICES OESOPHAGEAL [None]
  - VENOOCCLUSIVE DISEASE [None]
